FAERS Safety Report 6619384-9 (Version None)
Quarter: 2010Q1

REPORT INFORMATION
  Report Type: 
  Country: None (occurrence: None)
  Receive Date: 20100309
  Receipt Date: 20100305
  Transmission Date: 20100710
  Serious: Yes (Other)
  Sender: FDA-Public Use
  Company Number: US-ASTRAZENECA-2009UW04218

PATIENT
  Age: 403 Month
  Sex: Female
  Weight: 52.2 kg

DRUGS (21)
  1. SEROQUEL [Suspect]
     Indication: SLEEP DISORDER
     Dosage: 100 MG TO 200 MG
     Route: 048
     Dates: start: 20060101, end: 20070101
  2. CYMBALTA [Concomitant]
     Dates: start: 20071118
  3. DILANTIN [Concomitant]
     Dates: start: 20000901
  4. WELLBUTRIN [Concomitant]
     Dosage: 50-75 MG
     Dates: start: 20020101, end: 20040101
  5. WELLBUTRIN [Concomitant]
     Dates: start: 20071101
  6. TRAZODONE HCL [Concomitant]
     Dosage: 100-200 MG
     Dates: start: 19910201, end: 20040101
  7. TRAZODONE HCL [Concomitant]
     Dates: start: 20071101
  8. ADDERALL 30 [Concomitant]
     Dates: start: 19980101
  9. TRILEPTAL [Concomitant]
     Dates: start: 20030101, end: 20040101
  10. EFFEXOR [Concomitant]
     Dates: start: 20040101
  11. REMERON [Concomitant]
     Dates: start: 20040101
  12. ELAVIL [Concomitant]
     Dates: start: 20040101
  13. COZAAR [Concomitant]
     Indication: HYPERTENSION
     Dates: start: 20040101
  14. COZAAR [Concomitant]
     Dates: start: 20071101
  15. SERZONE [Concomitant]
     Route: 048
     Dates: start: 19980519
  16. BUSPAR [Concomitant]
     Route: 048
     Dates: start: 19980519
  17. DEPAKOTE [Concomitant]
     Dosage: THREE TABLETS DAILY
     Route: 048
     Dates: start: 19980519
  18. CELEXA [Concomitant]
     Dates: start: 20000101
  19. NEURONTIN [Concomitant]
     Dates: start: 20000101
  20. KLONOPIN [Concomitant]
     Dates: start: 20000101
  21. FOCALIN [Concomitant]
     Dates: start: 20071101

REACTIONS (9)
  - BLOOD GLUCOSE INCREASED [None]
  - DIABETES MELLITUS INADEQUATE CONTROL [None]
  - DIABETIC EYE DISEASE [None]
  - DIABETIC NEUROPATHY [None]
  - DIABETIC RETINOPATHY [None]
  - PROTEINURIA [None]
  - RENAL CYST [None]
  - RENAL DISORDER [None]
  - WEIGHT INCREASED [None]
